FAERS Safety Report 20505610 (Version 3)
Quarter: 2022Q1

REPORT INFORMATION
  Report Type: Spontaneous
  Country: MA (occurrence: MA)
  Receive Date: 20220223
  Receipt Date: 20220326
  Transmission Date: 20220424
  Serious: Yes (Other)
  Sender: FDA-Public Use
  Company Number: MA-AMGEN-MARSP2022028981

PATIENT
  Age: 23 Year
  Sex: Male

DRUGS (3)
  1. BLINCYTO [Suspect]
     Active Substance: BLINATUMOMAB
     Indication: B precursor type acute leukaemia
     Dosage: 9 MICROGRAM, QD
     Route: 042
  2. BLINCYTO [Suspect]
     Active Substance: BLINATUMOMAB
     Dosage: 28 MICROGRAM, QD
     Route: 042
  3. NILOTINIB [Suspect]
     Active Substance: NILOTINIB
     Indication: B precursor type acute leukaemia
     Route: 065

REACTIONS (4)
  - Leukaemic infiltration extramedullary [Recovered/Resolved]
  - Pericarditis [Unknown]
  - Cardiac failure [Not Recovered/Not Resolved]
  - Central nervous system leukaemia [Unknown]
